FAERS Safety Report 7407088-4 (Version None)
Quarter: 2011Q2

REPORT INFORMATION
  Report Type: 
  Country: None (occurrence: None)
  Receive Date: 20110411
  Receipt Date: 20110404
  Transmission Date: 20111010
  Serious: Yes (Other)
  Sender: FDA-Public Use
  Company Number: JP-GENZYME-FABR-1001314

PATIENT

DRUGS (3)
  1. FABRAZYME [Suspect]
     Indication: FABRY'S DISEASE
     Dosage: 50 MG, Q2W
     Route: 042
     Dates: start: 20100401, end: 20110101
  2. ANGIOTENSIN RECEPTOR BLOCKER [Concomitant]
     Indication: PRODUCT USED FOR UNKNOWN INDICATION
  3. FABRAZYME [Suspect]
     Dosage: 35 MG, Q4W
     Route: 042
     Dates: start: 20100225

REACTIONS (2)
  - BRAIN NATRIURETIC PEPTIDE INCREASED [None]
  - BLOOD CREATININE INCREASED [None]
